FAERS Safety Report 7167167-6 (Version None)
Quarter: 2010Q4

REPORT INFORMATION
  Report Type: 
  Country: None (occurrence: None)
  Receive Date: 20101216
  Receipt Date: 20101203
  Transmission Date: 20110411
  Serious: Yes (Hospitalization, Other)
  Sender: FDA-Public Use
  Company Number: PHHY2010BR37981

PATIENT
  Sex: Female

DRUGS (2)
  1. DIOVAN AMLO FIX [Suspect]
     Dosage: UNK
  2. ENALAPRIL [Concomitant]
     Dosage: 20 MG, UNK

REACTIONS (2)
  - FRACTURE [None]
  - HYPERTENSION [None]
